FAERS Safety Report 16783207 (Version 1)
Quarter: 2019Q3

REPORT INFORMATION
  Report Type: Report from Study
  Country: None (occurrence: RO)
  Receive Date: 20190907
  Receipt Date: 20190907
  Transmission Date: 20191005
  Serious: Yes (Hospitalization)
  Sender: FDA-Public Use
  Company Number: RO-ABBVIE-19K-135-2911638-00

PATIENT
  Age: 61 Year
  Sex: Female

DRUGS (5)
  1. VIEKIRAX [Suspect]
     Active Substance: OMBITASVIR\PARITAPREVIR\RITONAVIR
     Indication: HEPATITIS C
     Route: 048
     Dates: start: 20190704
  2. EXVIERA [Suspect]
     Active Substance: DASABUVIR
     Indication: HEPATITIS C
     Route: 048
     Dates: start: 20190704, end: 2019
  3. EXVIERA [Suspect]
     Active Substance: DASABUVIR
     Indication: HEPATIC CIRRHOSIS
     Route: 048
     Dates: start: 2019
  4. VIEKIRAX [Suspect]
     Active Substance: OMBITASVIR\PARITAPREVIR\RITONAVIR
     Indication: HEPATIC CIRRHOSIS
  5. INSULIN [Concomitant]
     Active Substance: INSULIN NOS
     Indication: DIABETES MELLITUS
     Dosage: 12-14 IU
     Route: 051

REACTIONS (3)
  - Infection [Recovered/Resolved]
  - Diarrhoea [Not Recovered/Not Resolved]
  - Food poisoning [Recovered/Resolved]

NARRATIVE: CASE EVENT DATE: 20190823
